FAERS Safety Report 7872591 (Version 4)
Quarter: 2013Q3

REPORT INFORMATION
  Report Type: Spontaneous
  Country: US (occurrence: US)
  Receive Date: 20110325
  Receipt Date: 20130802
  Transmission Date: 20140515
  Serious: Yes (Death, Hospitalization)
  Sender: FDA-Public Use
  Company Number: US-JNJFOC-20110306006

PATIENT
  Age: 74 Year
  Sex: Female
  Weight: 51.26 kg

DRUGS (28)
  1. REMICADE [Suspect]
     Indication: RHEUMATOID ARTHRITIS
     Dosage: INFUSION #13
     Route: 042
     Dates: start: 20101213
  2. REMICADE [Suspect]
     Indication: RHEUMATOID ARTHRITIS
     Dosage: INFUSION #12
     Route: 042
     Dates: start: 20101101
  3. REMICADE [Suspect]
     Indication: RHEUMATOID ARTHRITIS
     Route: 042
     Dates: start: 20090831
  4. REMICADE [Suspect]
     Indication: RHEUMATOID ARTHRITIS
     Dosage: 6 MG/KG; INFUSION # 11
     Route: 042
     Dates: start: 20100816
  5. BENADRYL [Concomitant]
     Indication: PREMEDICATION
     Route: 048
     Dates: start: 20101101, end: 20101213
  6. PREDNISONE [Concomitant]
     Indication: ARTHRALGIA
     Dosage: INTERMITTENT; 10-20 MG DAILY
  7. OMEPRAZOLE [Concomitant]
  8. LISINOPRIL [Concomitant]
     Dates: start: 20101228
  9. TRAMADOL [Concomitant]
  10. ATENOLOL [Concomitant]
     Indication: HYPERTENSION
     Dates: start: 20100108
  11. ALENDRONATE [Concomitant]
     Dates: start: 20100108
  12. GLUCOSAMINE + CHONDROITIN COMBO [Concomitant]
     Dosage: 500-400 TWICE DAILY
     Route: 065
  13. CENTRUM SILVER [Concomitant]
     Route: 048
  14. ZINC [Concomitant]
     Route: 048
  15. FISH OIL [Concomitant]
     Route: 048
  16. CALCIUM [Concomitant]
     Route: 048
  17. ASPIRIN [Concomitant]
  18. VITAMIN D [Concomitant]
  19. PATANOL [Concomitant]
     Route: 047
  20. OCUVITE NOS [Concomitant]
  21. INFLUENZA VACCINE [Concomitant]
     Dates: start: 20100920
  22. METFORMIN [Concomitant]
     Route: 065
  23. ORENCIA [Concomitant]
     Route: 065
     Dates: start: 20111201
  24. PROLIA [Concomitant]
     Route: 065
     Dates: start: 20121203
  25. METOPROLOL [Concomitant]
     Route: 065
  26. SPIRONOLACTONE [Concomitant]
     Route: 065
  27. SOLU-MEDROL [Concomitant]
     Indication: PREMEDICATION
     Route: 042
     Dates: start: 20101213
  28. MULTIVITAMINS [Concomitant]
     Route: 065

REACTIONS (10)
  - Hepato-lenticular degeneration [Fatal]
  - Cerebrovascular accident [Recovered/Resolved]
  - Synovitis [Unknown]
  - Glycosylated haemoglobin [Unknown]
  - Retinal haemorrhage [Recovering/Resolving]
  - Arthralgia [Unknown]
  - Swelling [Unknown]
  - Pruritus [Recovered/Resolved]
  - Infusion related reaction [Recovered/Resolved]
  - Drug hypersensitivity [Unknown]
